FAERS Safety Report 4582454-3 (Version None)
Quarter: 2005Q1

REPORT INFORMATION
  Report Type: 
  Country: None (occurrence: None)
  Receive Date: 20050211
  Receipt Date: 20050211
  Transmission Date: 20050727
  Serious: Yes (Other)
  Sender: FDA-Public Use
  Company Number: None

PATIENT
  Age: 25 Year
  Sex: Male
  Weight: 63.5036 kg

DRUGS (2)
  1. CIPRO [Suspect]
     Indication: DIARRHOEA
     Dosage: 250MG, 2 TIMES/DAY
     Dates: start: 19980306, end: 19980315
  2. IMODIUM [Concomitant]

REACTIONS (8)
  - CEREBROVASCULAR ACCIDENT [None]
  - DISTURBANCE IN ATTENTION [None]
  - FATIGUE [None]
  - FEELING ABNORMAL [None]
  - MEMORY IMPAIRMENT [None]
  - NERVOUSNESS [None]
  - PARAESTHESIA [None]
  - VISUAL DISTURBANCE [None]
